FAERS Safety Report 6192263-X (Version None)
Quarter: 2009Q2

REPORT INFORMATION
  Report Type: 
  Country: None (occurrence: None)
  Receive Date: 20090515
  Receipt Date: 20090507
  Transmission Date: 20091009
  Serious: Yes (Other)
  Sender: FDA-Public Use
  Company Number: PHEH2009US04493

PATIENT
  Sex: Female
  Weight: 91 kg

DRUGS (3)
  1. STARLIX [Suspect]
     Dosage: UNK
  2. INSULIN GLARGINE [Suspect]
     Indication: DIABETES MELLITUS
     Dosage: 70 U, UNK
     Route: 058
  3. INSULIN GLARGINE [Suspect]
     Dosage: 70 U, UNK
     Route: 058

REACTIONS (4)
  - BLOOD GLUCOSE INCREASED [None]
  - DIABETES MELLITUS [None]
  - DISEASE PROGRESSION [None]
  - WEIGHT INCREASED [None]
